FAERS Safety Report 20577791 (Version 1)
Quarter: 2022Q1

REPORT INFORMATION
  Report Type: Spontaneous
  Country: US (occurrence: US)
  Receive Date: 20220310
  Receipt Date: 20220310
  Transmission Date: 20220423
  Serious: Yes (Hospitalization, Other)
  Sender: FDA-Public Use
  Company Number: US-MYLANLABS-2022M1018071

PATIENT
  Age: 15 Year
  Sex: Male

DRUGS (3)
  1. PREDNISONE [Suspect]
     Active Substance: PREDNISONE
     Indication: Crohn^s disease
     Dosage: 10 MILLIGRAM, QD
     Route: 048
  2. INFLIXIMAB [Suspect]
     Active Substance: INFLIXIMAB
     Indication: Crohn^s disease
     Dosage: 5 MILLIGRAM/KILOGRAM, 5 MG/KG/DOSE
  3. POSACONAZOLE [Concomitant]
     Active Substance: POSACONAZOLE
     Indication: Prophylaxis
     Dosage: UNK
     Route: 065

REACTIONS (6)
  - Oral herpes [Unknown]
  - Candida infection [Recovered/Resolved]
  - Lymphadenitis fungal [Recovered/Resolved]
  - Drug ineffective [Unknown]
  - Klebsiella infection [Unknown]
  - Staphylococcal infection [Unknown]
